FAERS Safety Report 6491821-2 (Version None)
Quarter: 2009Q4

REPORT INFORMATION
  Report Type: 
  Country: None (occurrence: None)
  Receive Date: 20091210
  Receipt Date: 20091201
  Transmission Date: 20100525
  Serious: Yes (Other)
  Sender: FDA-Public Use
  Company Number: 2009SP039732

PATIENT
  Age: 20 Year
  Sex: Male

DRUGS (3)
  1. SAPHRIS [Suspect]
     Indication: SCHIZOPHRENIA
     Dosage: 5 MG;BID;SL
     Dates: start: 20091101
  2. ZOLOFT [Concomitant]
  3. WELLBUTRIN [Concomitant]

REACTIONS (5)
  - ABNORMAL BEHAVIOUR [None]
  - CONDITION AGGRAVATED [None]
  - INCORRECT DOSE ADMINISTERED [None]
  - SCHIZOPHRENIA [None]
  - SELF-MEDICATION [None]
